FAERS Safety Report 8554497-6 (Version None)
Quarter: 2012Q3

REPORT INFORMATION
  Report Type: 
  Country: None (occurrence: None)
  Receive Date: 20120731
  Receipt Date: 20120718
  Transmission Date: 20120928
  Serious: No
  Sender: FDA-Public Use
  Company Number: US-009507513-1205USA01740

PATIENT

DRUGS (3)
  1. ZETIA [Suspect]
     Indication: BLOOD CHOLESTEROL INCREASED
     Dosage: UNK
     Route: 048
     Dates: start: 20120417, end: 20120506
  2. CELEBREX [Concomitant]
  3. NAPROXEN (ALEVE) [Concomitant]

REACTIONS (1)
  - RASH [None]
